FAERS Safety Report 22031753 (Version 1)
Quarter: 2023Q1

REPORT INFORMATION
  Report Type: Spontaneous
  Country: US (occurrence: US)
  Receive Date: 20230224
  Receipt Date: 20230224
  Transmission Date: 20230417
  Serious: No
  Sender: FDA-Public Use
  Company Number: US-ELI_LILLY_AND_COMPANY-US202302010467

PATIENT
  Age: 65 Year
  Sex: Male

DRUGS (4)
  1. BASAGLAR [Suspect]
     Active Substance: INSULIN GLARGINE
     Indication: Type 2 diabetes mellitus
     Dosage: 16 U, UNKNOWN
     Route: 065
     Dates: start: 2019
  2. BASAGLAR [Suspect]
     Active Substance: INSULIN GLARGINE
     Indication: Type 2 diabetes mellitus
     Dosage: 16 U, UNKNOWN
     Route: 065
     Dates: start: 2019
  3. BASAGLAR [Suspect]
     Active Substance: INSULIN GLARGINE
     Dosage: 16 U, UNKNOWN
     Route: 065
  4. BASAGLAR [Suspect]
     Active Substance: INSULIN GLARGINE
     Dosage: 16 U, UNKNOWN
     Route: 065

REACTIONS (4)
  - Macular degeneration [Unknown]
  - Blood glucose increased [Unknown]
  - Visual impairment [Not Recovered/Not Resolved]
  - Hypertension [Unknown]

NARRATIVE: CASE EVENT DATE: 20221001
